FAERS Safety Report 6304807-5 (Version None)
Quarter: 2009Q3

REPORT INFORMATION
  Report Type: 
  Country: None (occurrence: None)
  Receive Date: 20090811
  Receipt Date: 20090730
  Transmission Date: 20100115
  Serious: Yes (Death, Other)
  Sender: FDA-Public Use
  Company Number: GB-ROCHE-562494

PATIENT
  Sex: Female

DRUGS (1)
  1. XELODA [Suspect]
     Route: 065
     Dates: start: 20070801, end: 20080201

REACTIONS (5)
  - BILE DUCT OBSTRUCTION [None]
  - BREAST CANCER METASTATIC [None]
  - ENCEPHALOPATHY [None]
  - METASTASES TO LIVER [None]
  - PANCREATITIS [None]
